FAERS Safety Report 15439630 (Version 2)
Quarter: 2018Q4

REPORT INFORMATION
  Report Type: Spontaneous
  Country: FR (occurrence: FR)
  Receive Date: 20180928
  Receipt Date: 20181024
  Transmission Date: 20190204
  Serious: Yes (Hospitalization, Other)
  Sender: FDA-Public Use
  Company Number: FR-GLAXOSMITHKLINE-FR2018GSK173424

PATIENT
  Age: 28 Year
  Sex: Female
  Weight: 71 kg

DRUGS (9)
  1. CORTANCYL [Suspect]
     Active Substance: PREDNISONE
     Indication: SYSTEMIC LUPUS ERYTHEMATOSUS
     Dosage: 7 MG, QD
  2. PLAQUENIL [Concomitant]
     Active Substance: HYDROXYCHLOROQUINE SULFATE
     Indication: SYSTEMIC LUPUS ERYTHEMATOSUS
     Dosage: 400 MG, QD
  3. SPECIAFOLDINE [Concomitant]
     Active Substance: FOLIC ACID
     Indication: PRODUCT USED FOR UNKNOWN INDICATION
     Dosage: 3 DF, Z
  4. KARDEGIC [Concomitant]
     Active Substance: ASPIRIN DL-LYSINE
     Indication: PRODUCT USED FOR UNKNOWN INDICATION
     Dosage: 10 DF, QD
  5. ALPRAZOLAM. [Concomitant]
     Active Substance: ALPRAZOLAM
     Indication: PRODUCT USED FOR UNKNOWN INDICATION
     Dosage: 0.25 MG, BID
  6. BENLYSTA [Suspect]
     Active Substance: BELIMUMAB
     Indication: SYSTEMIC LUPUS ERYTHEMATOSUS
     Dosage: 760 MG, Z
     Route: 042
     Dates: start: 20180904
  7. METOJECT [Suspect]
     Active Substance: METHOTREXATE SODIUM
     Indication: SYSTEMIC LUPUS ERYTHEMATOSUS
     Dosage: 20 MG, WE
     Route: 058
  8. EFFEXOR [Concomitant]
     Active Substance: VENLAFAXINE HYDROCHLORIDE
     Indication: PRODUCT USED FOR UNKNOWN INDICATION
     Dosage: 75 MG, 1D
  9. RANITIDINE. [Concomitant]
     Active Substance: RANITIDINE
     Indication: PRODUCT USED FOR UNKNOWN INDICATION
     Dosage: 300 L, 1D

REACTIONS (15)
  - Meningeal disorder [Recovering/Resolving]
  - Musculoskeletal stiffness [Recovered/Resolved]
  - Hypoaesthesia [Recovering/Resolving]
  - Keratitis [Recovered/Resolved]
  - Rash vesicular [Unknown]
  - Swelling of eyelid [Recovering/Resolving]
  - Herpes zoster [Recovered/Resolved]
  - Ophthalmic herpes zoster [Recovering/Resolving]
  - Bicytopenia [Unknown]
  - Eye pain [Recovering/Resolving]
  - Photophobia [Recovering/Resolving]
  - Erythema of eyelid [Recovering/Resolving]
  - Herpes zoster meningoradiculitis [Recovered/Resolved]
  - Headache [Recovering/Resolving]
  - Phonophobia [Recovering/Resolving]

NARRATIVE: CASE EVENT DATE: 201809
